FAERS Safety Report 5267516-X (Version None)
Quarter: 2007Q1

REPORT INFORMATION
  Report Type: 
  Country: None (occurrence: None)
  Receive Date: 20061213
  Receipt Date: 20031209
  Transmission Date: 20070707
  Serious: No
  Sender: FDA-Public Use
  Company Number: 2003UW10729

PATIENT
  Age: 58 Year
  Sex: Female

DRUGS (8)
  1. TAMOXIFEN CITRATE [Suspect]
     Indication: BREAST CANCER
     Dosage: 20 MG QD PO
     Route: 048
     Dates: start: 20030808, end: 20030817
  2. LISINOPRIL [Concomitant]
  3. PLAVIX [Concomitant]
  4. LASIX [Concomitant]
  5. MAGNESIUM OXIDE [Concomitant]
  6. CALCIUM [Concomitant]
  7. ASPIRIN [Concomitant]
  8. PREVACID [Concomitant]

REACTIONS (1)
  - ERYTHEMA MULTIFORME [None]
